FAERS Safety Report 17946331 (Version 4)
Quarter: 2020Q3

REPORT INFORMATION
  Report Type: Spontaneous
  Country: ES (occurrence: ES)
  Receive Date: 20200625
  Receipt Date: 20200723
  Transmission Date: 20201103
  Serious: Yes (Death, Other)
  Sender: FDA-Public Use
  Company Number: ES-PFIZER INC-2020242396

PATIENT
  Age: 65 Year
  Sex: Female

DRUGS (4)
  1. PALBOCICLIB [Suspect]
     Active Substance: PALBOCICLIB
     Dosage: 125 MG, CYCLIC (125 MG/DAY X 21 DAYS EVERY 28 DAYS)
     Route: 048
     Dates: start: 201711
  2. FULVESTRANT. [Suspect]
     Active Substance: FULVESTRANT
     Indication: BREAST CANCER METASTATIC
     Dosage: 500 MG, MONTHLY (EVERY 28 DAYS, AFTER LOADING DOSE)
     Route: 030
     Dates: start: 201711, end: 201909
  3. ZOLEDRONIC ACID [Suspect]
     Active Substance: ZOLEDRONIC ACID
     Indication: BREAST CANCER METASTATIC
     Dosage: 4 MG, EVERY 3 MONTHS
     Route: 042
     Dates: start: 201407
  4. PALBOCICLIB [Suspect]
     Active Substance: PALBOCICLIB
     Indication: BREAST CANCER METASTATIC
     Dosage: 100 MG, DAILY (100 MG/24 H)
     Route: 048
     Dates: end: 201909

REACTIONS (3)
  - Neoplasm progression [Fatal]
  - Neutropenia [Fatal]
  - Asthenia [Fatal]

NARRATIVE: CASE EVENT DATE: 201909
